FAERS Safety Report 16952056 (Version 3)
Quarter: 2019Q4

REPORT INFORMATION
  Report Type: Report from Study
  Country: US (occurrence: US)
  Receive Date: 20191023
  Receipt Date: 20191230
  Transmission Date: 20200122
  Serious: Yes (Death, Hospitalization)
  Sender: FDA-Public Use
  Company Number: US-ACTELION-A-NJ2019-197148

PATIENT
  Age: 55 Year
  Sex: Female

DRUGS (1)
  1. OPSUMIT [Suspect]
     Active Substance: MACITENTAN
     Indication: PULMONARY ARTERIAL HYPERTENSION
     Dosage: 10 MG, QD
     Route: 048

REACTIONS (8)
  - Multiple organ dysfunction syndrome [Fatal]
  - Transplant evaluation [Unknown]
  - Non-alcoholic steatohepatitis [Unknown]
  - Abdominal pain [Unknown]
  - Oedema peripheral [Unknown]
  - Hepatic encephalopathy [Unknown]
  - Portal hypertension [Unknown]
  - Pulmonary arterial pressure abnormal [Unknown]

NARRATIVE: CASE EVENT DATE: 20191117
